FAERS Safety Report 24796430 (Version 2)
Quarter: 2025Q1

REPORT INFORMATION
  Report Type: Spontaneous
  Country: US (occurrence: US)
  Receive Date: 20250101
  Receipt Date: 20250107
  Transmission Date: 20250409
  Serious: Yes (Life-Threatening, Hospitalization, Other)
  Sender: ACCORD
  Company Number: US-Accord-462146

PATIENT
  Sex: Male

DRUGS (2)
  1. AMLODIPINE [Interacting]
     Active Substance: AMLODIPINE BESYLATE
     Route: 048
  2. LISINOPRIL [Interacting]
     Active Substance: LISINOPRIL
     Route: 048

REACTIONS (9)
  - Shock [Recovered/Resolved]
  - Overdose [Unknown]
  - Hypotension [Recovered/Resolved]
  - Leukocytosis [Recovered/Resolved]
  - Distributive shock [Recovered/Resolved]
  - Haemodynamic instability [Recovered/Resolved]
  - Sepsis [Recovered/Resolved]
  - Renal injury [Recovered/Resolved]
  - Drug interaction [Unknown]
